FAERS Safety Report 23660802 (Version 2)
Quarter: 2024Q2

REPORT INFORMATION
  Report Type: Other
  Country: US (occurrence: None)
  Receive Date: 20240322
  Receipt Date: 20240403
  Transmission Date: 20240716
  Serious: Yes (Hospitalization, Other)
  Sender: FDA-Public Use
  Company Number: US-ROCHE-3528574

PATIENT
  Age: 58 Year
  Sex: Female

DRUGS (9)
  1. VALIUM [Suspect]
     Active Substance: DIAZEPAM
     Indication: Product used for unknown indication
     Route: 065
  2. PREGABALIN [Concomitant]
     Active Substance: PREGABALIN
  3. IBUPROFEN [Concomitant]
     Active Substance: IBUPROFEN
  4. ACETAMINOPHEN [Concomitant]
     Active Substance: ACETAMINOPHEN
  5. BUPROPION [Concomitant]
     Active Substance: BUPROPION
  6. TIZANIDINE [Concomitant]
     Active Substance: TIZANIDINE
  7. DALFAMPRIDINE [Concomitant]
     Active Substance: DALFAMPRIDINE
  8. GABAPENTIN [Concomitant]
     Active Substance: GABAPENTIN
  9. SHINGRIX [Concomitant]
     Active Substance: RECOMBINANT VARICELLA ZOSTER VIRUS (VZV) GLYCOPROTEIN E

REACTIONS (10)
  - Fatigue [Unknown]
  - Pyelonephritis [Unknown]
  - Pain [Unknown]
  - Neutropenia [Unknown]
  - Anxiety [Unknown]
  - Depression [Unknown]
  - Muscular weakness [Unknown]
  - Pyrexia [Unknown]
  - Lymphopenia [Unknown]
  - Sepsis [Unknown]
